FAERS Safety Report 8615821-9 (Version None)
Quarter: 2012Q3

REPORT INFORMATION
  Report Type: 
  Country: None (occurrence: None)
  Receive Date: 20120823
  Receipt Date: 20120821
  Transmission Date: 20120928
  Serious: Yes (Life-Threatening, Hospitalization, Disabling, Other)
  Sender: FDA-Public Use
  Company Number: PHHY2012GB072118

PATIENT
  Age: 32 Year
  Sex: Male

DRUGS (1)
  1. DIAZEPAM [Suspect]
     Indication: ANXIETY
     Dosage: 6 MG
     Route: 048

REACTIONS (1)
  - MORBID THOUGHTS [None]
